FAERS Safety Report 6336402-6 (Version None)
Quarter: 2009Q3

REPORT INFORMATION
  Report Type: 
  Country: None (occurrence: None)
  Receive Date: 20090828
  Receipt Date: 20081127
  Transmission Date: 20100115
  Serious: No
  Sender: FDA-Public Use
  Company Number: TCI2008A05500

PATIENT
  Age: 62 Year
  Sex: Male

DRUGS (4)
  1. LANSOPRAZOLE [Suspect]
     Indication: REFLUX OESOPHAGITIS
     Dosage: 30 MG (30 MG, 1 IN 1 D) PER ORAL
     Route: 048
     Dates: start: 20080701, end: 20080707
  2. CALBLOCK (AZELNIDIPINE) [Concomitant]
  3. BIO THREE (BACTERIA NOS) [Concomitant]
  4. MARZULENE ES (SODIUM GUALENATE) [Concomitant]

REACTIONS (2)
  - MIDDLE INSOMNIA [None]
  - VISION BLURRED [None]
